FAERS Safety Report 8632152 (Version 7)
Quarter: 2013Q4

REPORT INFORMATION
  Report Type: Spontaneous
  Country: GB (occurrence: GB)
  Receive Date: 20120611
  Receipt Date: 20131111
  Transmission Date: 20140711
  Serious: Yes (Other)
  Sender: FDA-Public Use
  Company Number: GB-009507513-2012SP029726

PATIENT
  Age: 82 Year
  Sex: Male

DRUGS (13)
  1. DEXAMETHASONE [Suspect]
     Indication: CHRONIC LYMPHOCYTIC LEUKAEMIA
     Dosage: 20 MG, QD
     Route: 065
     Dates: start: 20110602
  2. BENDAMUSTINE HYDROCHLORIDE [Suspect]
     Indication: CHRONIC LYMPHOCYTIC LEUKAEMIA
     Dosage: 70 MG/M2, QD
     Route: 065
     Dates: start: 20110613, end: 20110614
  3. BENDAMUSTINE HYDROCHLORIDE [Suspect]
     Dosage: 70 MG/M2, QD
     Route: 065
     Dates: start: 20110711
  4. BENDAMUSTINE HYDROCHLORIDE [Suspect]
     Dosage: 70 MG/M2, QD
     Route: 065
     Dates: start: 20110809
  5. ACYCLOVIR [Concomitant]
     Indication: PROPHYLAXIS
     Dosage: 400 MG, TID
     Route: 065
  6. ALLOPURINOL SODIUM [Concomitant]
     Indication: PROPHYLAXIS
     Dosage: 1300 MG, QD
     Route: 065
  7. ASPIRIN [Concomitant]
     Dosage: 75 MG, QD
     Route: 065
  8. CIPRO [Concomitant]
     Indication: PROPHYLAXIS
     Dosage: 250 MG, BID
  9. CLEXANE (ENOXAPARIN SODIUM) [Concomitant]
     Dosage: 100 MG, QD
     Route: 058
  10. FLUCONAZOLE [Concomitant]
     Indication: PROPHYLAXIS
     Dosage: 50 MG, QD
     Route: 065
  11. RAMIPRIL [Concomitant]
     Dosage: 5 MG, QD
     Route: 065
  12. SIMVASTATIN [Concomitant]
     Dosage: 20 MG, QD
     Route: 065
  13. OMEPRAZOLE [Concomitant]
     Indication: PROPHYLAXIS
     Dosage: 20 MG, QD

REACTIONS (5)
  - Infection [Recovered/Resolved]
  - Flushing [Recovered/Resolved]
  - Chills [Recovered/Resolved]
  - Feeling hot [Recovered/Resolved]
  - Malaise [Recovered/Resolved]
